FAERS Safety Report 8256895-7 (Version None)
Quarter: 2012Q2

REPORT INFORMATION
  Report Type: 
  Country: None (occurrence: None)
  Receive Date: 20120403
  Receipt Date: 20120323
  Transmission Date: 20120825
  Serious: Yes (Hospitalization)
  Sender: FDA-Public Use
  Company Number: BE-ELI_LILLY_AND_COMPANY-BE201202004089

PATIENT
  Sex: Male

DRUGS (3)
  1. CISPLATIN [Suspect]
     Indication: NON-SMALL CELL LUNG CANCER
     Dosage: 75 MG/M2, EVERY THREE WEEKS
     Route: 042
     Dates: start: 20111213, end: 20120124
  2. GEMCITABINE HYDROCHLORIDE [Suspect]
     Indication: NON-SMALL CELL LUNG CANCER
     Dosage: 1250 MG/M2, UNK
     Route: 042
     Dates: start: 20111213, end: 20120131
  3. CETUXIMAB [Suspect]
     Indication: NON-SMALL CELL LUNG CANCER
     Dosage: 250MG/M2, WEEKLY (1/W)
     Route: 042
     Dates: start: 20111213, end: 20120131

REACTIONS (1)
  - DIVERTICULITIS [None]
